FAERS Safety Report 6115244-0 (Version None)
Quarter: 2009Q1

REPORT INFORMATION
  Report Type: 
  Country: None (occurrence: None)
  Receive Date: 20090313
  Receipt Date: 20090304
  Transmission Date: 20090719
  Serious: Yes (Hospitalization, Disabling)
  Sender: FDA-Public Use
  Company Number: US-MERCK-0712USA07472

PATIENT
  Age: 65 Year
  Sex: Female
  Weight: 73 kg

DRUGS (7)
  1. FOSAMAX [Suspect]
     Indication: OSTEOPENIA
     Route: 048
     Dates: start: 19970301, end: 20040101
  2. FOSAMAX [Suspect]
     Route: 048
     Dates: start: 19970301, end: 20040101
  3. FOSAMAX [Suspect]
     Route: 048
     Dates: start: 20040101, end: 20050101
  4. FOSAMAX [Suspect]
     Route: 048
     Dates: start: 20040101, end: 20050101
  5. FOSAMAX [Suspect]
     Route: 048
     Dates: start: 20040101, end: 20050101
  6. [THERAPY UNSPECIFIED] [Concomitant]
     Route: 065
  7. SYNTHROID [Concomitant]
     Route: 065
     Dates: start: 19740101

REACTIONS (19)
  - ABDOMINAL PAIN UPPER [None]
  - BILIARY COLIC [None]
  - BILIARY DYSKINESIA [None]
  - BLOOD CHOLESTEROL INCREASED [None]
  - CHOLECYSTITIS [None]
  - CONTUSION [None]
  - DENTAL NECROSIS [None]
  - DYSPEPSIA [None]
  - FAILURE OF IMPLANT [None]
  - FALL [None]
  - GASTRITIS [None]
  - GINGIVAL BLEEDING [None]
  - HYPERLIPIDAEMIA [None]
  - JAW DISORDER [None]
  - NON-CARDIAC CHEST PAIN [None]
  - OBESITY [None]
  - OEDEMA PERIPHERAL [None]
  - TOOTH DISORDER [None]
  - TOOTH FRACTURE [None]
